FAERS Safety Report 23768968 (Version 2)
Quarter: 2024Q2

REPORT INFORMATION
  Report Type: Spontaneous
  Country: US (occurrence: US)
  Receive Date: 20240422
  Receipt Date: 20240426
  Transmission Date: 20240715
  Serious: No
  Sender: FDA-Public Use
  Company Number: US-GRUNENTHAL-2024-118865

PATIENT
  Sex: Female

DRUGS (1)
  1. QUTENZA [Suspect]
     Active Substance: CAPSAICIN
     Indication: Neuropathy peripheral
     Dosage: UNK
     Route: 061

REACTIONS (3)
  - Application site erythema [Unknown]
  - Application site pain [Recovered/Resolved]
  - Application site pain [Recovered/Resolved]
